FAERS Safety Report 5414642-8 (Version None)
Quarter: 2007Q3

REPORT INFORMATION
  Report Type: 
  Country: None (occurrence: None)
  Receive Date: 20070813
  Receipt Date: 20070723
  Transmission Date: 20080115
  Serious: Yes (Other)
  Sender: FDA-Public Use
  Company Number: 2007US001840

PATIENT
  Age: 60 Year
  Sex: 0

DRUGS (1)
  1. PROGRAF [Suspect]
     Indication: DRUG USE FOR UNKNOWN INDICATION

REACTIONS (1)
  - MYCOSIS FUNGOIDES [None]
